FAERS Safety Report 10251301 (Version 1)
Quarter: 2014Q2

REPORT INFORMATION
  Report Type: Other
  Country: DE (occurrence: DE)
  Receive Date: 20140621
  Receipt Date: 20140621
  Transmission Date: 20141212
  Serious: No
  Sender: FDA-Public Use
  Company Number: DE-LUPIN PHARMACEUTICALS INC.-E2B_00001972

PATIENT
  Age: 71 Year
  Sex: Male
  Weight: 79 kg

DRUGS (3)
  1. SIMVASTATIN [Suspect]
     Indication: ARTERIOSCLEROSIS
     Route: 048
     Dates: start: 2012
  2. LISINOPRIL [Concomitant]
     Indication: HYPERTENSION
     Route: 048
     Dates: start: 2009
  3. HCT [Concomitant]
     Indication: HYPERTENSION
     Route: 048
     Dates: start: 2009

REACTIONS (2)
  - Visual acuity reduced [Recovered/Resolved]
  - Visual impairment [Recovered/Resolved]
